FAERS Safety Report 14916305 (Version 1)
Quarter: 2018Q2

REPORT INFORMATION
  Report Type: Spontaneous
  Country: IT (occurrence: IT)
  Receive Date: 20180519
  Receipt Date: 20180519
  Transmission Date: 20180711
  Serious: Yes (Other)
  Sender: FDA-Public Use
  Company Number: IT-AUROBINDO-AUR-APL-2017-45932

PATIENT
  Age: 69 Year
  Sex: Male

DRUGS (1)
  1. BISOPROLOL [Suspect]
     Active Substance: BISOPROLOL
     Indication: MYOCARDIAL INFARCTION
     Dosage: 1.25 MG, ONCE A DAY
     Route: 048

REACTIONS (2)
  - Syncope [Recovered/Resolved]
  - Trifascicular block [Recovered/Resolved]

NARRATIVE: CASE EVENT DATE: 20171124
